APPROVED DRUG PRODUCT: EZETIMIBE
Active Ingredient: EZETIMIBE
Strength: 10MG
Dosage Form/Route: TABLET;ORAL
Application: A201790 | Product #001
Applicant: RISING PHARMA HOLDING INC
Approved: Apr 26, 2019 | RLD: No | RS: No | Type: DISCN